FAERS Safety Report 8806932 (Version 1)
Quarter: 2012Q4

REPORT INFORMATION
  Report Type: 
  Country: US (occurrence: US)
  Receive Date: 20120925
  Receipt Date: 20120925
  Transmission Date: 20130627
  Serious: No
  Sender: FDA-Public Use
  Company Number: US-BAYER-2012-099713

PATIENT
  Age: 33 Year
  Sex: Female

DRUGS (2)
  1. MAGNEVIST [Suspect]
     Dosage: 8 ml, ONCE
     Dates: start: 20120911, end: 20120911
  2. XANAX [Concomitant]
     Dosage: UNK
     Dates: start: 20120911, end: 20120911

REACTIONS (2)
  - Pruritus [None]
  - Chest discomfort [None]
